FAERS Safety Report 10227213 (Version 21)
Quarter: 2016Q3

REPORT INFORMATION
  Report Type: Report from Study
  Country: CA (occurrence: CA)
  Receive Date: 20140610
  Receipt Date: 20160705
  Transmission Date: 20161109
  Serious: Yes (Hospitalization)
  Sender: FDA-Public Use
  Company Number: CA-ROCHE-1414841

PATIENT
  Age: 63 Year
  Sex: Male
  Weight: 67.2 kg

DRUGS (67)
  1. OBINUTUZUMAB [Suspect]
     Active Substance: OBINUTUZUMAB
     Dosage: LAST DOSE PRIOR TO FEBRILE NEUTROPENIA AND WORSENING OF BRONCHIECTASIS: 02/JUN/2014?TEMPORARILY INTE
     Route: 042
     Dates: start: 20140529, end: 20140604
  2. OBINUTUZUMAB [Suspect]
     Active Substance: OBINUTUZUMAB
     Dosage: C5D1
     Route: 042
     Dates: start: 20141014, end: 20141014
  3. BENDAMUSTINE [Suspect]
     Active Substance: BENDAMUSTINE
     Dosage: DOSE REDUCED DUE TO NEUTROPENIA.?C4D1
     Route: 042
     Dates: start: 20140903, end: 20140903
  4. BENDAMUSTINE [Suspect]
     Active Substance: BENDAMUSTINE
     Dosage: C5D1
     Route: 042
     Dates: start: 20141014, end: 20141014
  5. BENDAMUSTINE [Suspect]
     Active Substance: BENDAMUSTINE
     Dosage: C6D1
     Route: 042
     Dates: start: 20141118, end: 20141118
  6. BENDAMUSTINE [Suspect]
     Active Substance: BENDAMUSTINE
     Dosage: C6D2?TEMPORARILY INTERRUPTED ON 10/NOV/2014?LAST DOSE PRIOR TO PNEUMONIA BECOMING SERIOUS: 19/NOV/20
     Route: 042
     Dates: start: 20141119, end: 20141119
  7. REACTINE (CANADA) [Concomitant]
     Active Substance: CETIRIZINE HYDROCHLORIDE
     Route: 048
     Dates: start: 20140525, end: 20140529
  8. CIPROFLOXACIN. [Concomitant]
     Active Substance: CIPROFLOXACIN
     Route: 048
     Dates: start: 20141002, end: 20141015
  9. K-LYTE (CANADA) [Concomitant]
     Route: 048
     Dates: start: 20140707, end: 20140728
  10. OBINUTUZUMAB [Suspect]
     Active Substance: OBINUTUZUMAB
     Dosage: C1D8?DOSE TEMPORARILY INTERRUPTED.
     Route: 042
     Dates: start: 20140611, end: 20140611
  11. OBINUTUZUMAB [Suspect]
     Active Substance: OBINUTUZUMAB
     Dosage: C3D1
     Route: 042
     Dates: start: 20140729, end: 20140729
  12. BENDAMUSTINE [Suspect]
     Active Substance: BENDAMUSTINE
     Indication: CHRONIC LYMPHOCYTIC LEUKAEMIA
     Dosage: C1D1
     Route: 042
     Dates: start: 20140528, end: 20140528
  13. OLANZAPINE. [Concomitant]
     Active Substance: OLANZAPINE
     Indication: MAJOR DEPRESSION
     Route: 048
     Dates: start: 2006
  14. OLANZAPINE. [Concomitant]
     Active Substance: OLANZAPINE
     Route: 065
     Dates: start: 20140515
  15. SEPTRA DS [Concomitant]
     Active Substance: SULFAMETHOXAZOLE\TRIMETHOPRIM
     Indication: PROPHYLAXIS
     Dosage: TWICE A DAY ON MONDAY, WEDNESDAY AND FRIDAY
     Route: 048
     Dates: start: 20140609
  16. FLAGYL [Concomitant]
     Active Substance: METRONIDAZOLE\METRONIDAZOLE HYDROCHLORIDE
     Route: 048
     Dates: start: 20140623, end: 20140708
  17. AVAMYS [Concomitant]
     Active Substance: FLUTICASONE FUROATE
     Dosage: 2 SPRAYS
     Route: 065
     Dates: start: 20140623, end: 20140708
  18. PLATELETS [Concomitant]
     Active Substance: HUMAN PLATELET, ALLOGENIC
     Dosage: 3 UNITS
     Route: 065
     Dates: start: 20140619, end: 20140619
  19. DEXAMETHASONE. [Concomitant]
     Active Substance: DEXAMETHASONE
     Dosage: ONE HOUR PRE OBNITUZUMAB ON DAYS 1 AND 2
     Route: 042
     Dates: start: 20140527, end: 20140528
  20. NYSTATIN. [Concomitant]
     Active Substance: NYSTATIN
     Route: 048
     Dates: start: 20141204, end: 20141205
  21. OBINUTUZUMAB [Suspect]
     Active Substance: OBINUTUZUMAB
     Dosage: C1D15
     Route: 042
     Dates: start: 20140618, end: 20140618
  22. SINGULAIR [Concomitant]
     Active Substance: MONTELUKAST SODIUM
     Route: 048
     Dates: start: 20140525, end: 20140527
  23. DEMEROL [Concomitant]
     Active Substance: MEPERIDINE HYDROCHLORIDE
     Indication: PLEURAL EFFUSION
     Route: 042
     Dates: start: 20140528, end: 20140528
  24. CIPROFLOXACIN. [Concomitant]
     Active Substance: CIPROFLOXACIN
     Route: 048
     Dates: start: 20140712, end: 20140718
  25. PLATELETS [Concomitant]
     Active Substance: HUMAN PLATELET, ALLOGENIC
     Dosage: 3 ADULT UNITS
     Route: 065
     Dates: start: 20140605, end: 20140606
  26. SALBUTAMOL [Concomitant]
     Active Substance: ALBUTEROL
     Dosage: BY MDI
     Route: 050
     Dates: start: 201311
  27. OBINUTUZUMAB [Suspect]
     Active Substance: OBINUTUZUMAB
     Indication: CHRONIC LYMPHOCYTIC LEUKAEMIA
     Dosage: TEMPORARILY INTERRUPTED DUE TO INFUSION RELATED REACTION.?C1D1
     Route: 042
     Dates: start: 20140528, end: 20140528
  28. BENDAMUSTINE [Suspect]
     Active Substance: BENDAMUSTINE
     Dosage: C2D1
     Route: 042
     Dates: start: 20140702, end: 20140702
  29. BENDAMUSTINE [Suspect]
     Active Substance: BENDAMUSTINE
     Dosage: C3D1
     Route: 042
     Dates: start: 20140729, end: 20140729
  30. BENDAMUSTINE [Suspect]
     Active Substance: BENDAMUSTINE
     Dosage: C4D2
     Route: 042
     Dates: start: 20140904, end: 20140904
  31. VITAMIN B12 [Concomitant]
     Active Substance: CYANOCOBALAMIN
     Route: 048
     Dates: start: 2006
  32. ADVAIR HFA [Concomitant]
     Active Substance: FLUTICASONE PROPIONATE\SALMETEROL XINAFOATE
     Indication: CHRONIC OBSTRUCTIVE PULMONARY DISEASE
     Dosage: 2 PUFFS
     Route: 065
     Dates: start: 20140515
  33. THIAMINE. [Concomitant]
     Active Substance: THIAMINE
     Route: 048
     Dates: start: 2006
  34. BENADRYL [Concomitant]
     Active Substance: DIPHENHYDRAMINE HYDROCHLORIDE
     Route: 042
     Dates: start: 20140528, end: 20140528
  35. TYLENOL [Concomitant]
     Active Substance: ACETAMINOPHEN
     Route: 048
     Dates: start: 20140707, end: 20140708
  36. OBINUTUZUMAB [Suspect]
     Active Substance: OBINUTUZUMAB
     Dosage: C4D1
     Route: 042
     Dates: start: 20140903, end: 20140903
  37. FOLATE [Concomitant]
     Active Substance: FOLATE SODIUM
     Route: 048
     Dates: start: 2006
  38. ATROVENT [Concomitant]
     Active Substance: IPRATROPIUM BROMIDE
     Indication: CHRONIC OBSTRUCTIVE PULMONARY DISEASE
     Dosage: INHALER
     Route: 065
     Dates: start: 201311
  39. ALLOPURINOL. [Concomitant]
     Active Substance: ALLOPURINOL
     Indication: PROPHYLAXIS
     Dosage: DAILY, HELD ON BENDAMUSTINE DAYS
     Route: 048
     Dates: start: 20140526, end: 20140601
  40. BENADRYL [Concomitant]
     Active Substance: DIPHENHYDRAMINE HYDROCHLORIDE
     Indication: DYSLIPIDAEMIA
     Route: 042
     Dates: start: 20140528, end: 20141118
  41. ACYCLOVIR. [Concomitant]
     Active Substance: ACYCLOVIR
     Route: 048
     Dates: start: 20140528
  42. VENTOLIN [Concomitant]
     Active Substance: ALBUTEROL SULFATE
     Indication: MAJOR DEPRESSION
     Route: 065
     Dates: start: 20140527, end: 20140530
  43. MAXERAN [Concomitant]
     Active Substance: METOCLOPRAMIDE HYDROCHLORIDE
     Route: 048
     Dates: start: 20140603
  44. AVAMYS [Concomitant]
     Active Substance: FLUTICASONE FUROATE
     Route: 050
     Dates: start: 20140623, end: 20140811
  45. METRONIDAZOLE. [Concomitant]
     Active Substance: METRONIDAZOLE
     Route: 048
     Dates: start: 20141002, end: 20141015
  46. VESICARE [Concomitant]
     Active Substance: SOLIFENACIN SUCCINATE
     Route: 048
     Dates: start: 20140902
  47. OBINUTUZUMAB [Suspect]
     Active Substance: OBINUTUZUMAB
     Dosage: C2D1
     Route: 042
     Dates: start: 20140702, end: 20140702
  48. FENOFIBRATE. [Concomitant]
     Active Substance: FENOFIBRATE
     Indication: DYSLIPIDAEMIA
     Route: 048
     Dates: start: 201211
  49. FENOFIBRATE. [Concomitant]
     Active Substance: FENOFIBRATE
     Route: 065
     Dates: start: 20140515
  50. ZANTAC [Concomitant]
     Active Substance: RANITIDINE HYDROCHLORIDE
     Route: 048
     Dates: start: 20140525, end: 20140528
  51. PLATELETS [Concomitant]
     Active Substance: HUMAN PLATELET, ALLOGENIC
     Dosage: 1 ADULT UNIT
     Route: 065
     Dates: start: 20140620, end: 20140620
  52. DEXAMETHASONE. [Concomitant]
     Active Substance: DEXAMETHASONE
     Indication: PROPHYLAXIS
     Dosage: 30 MINUTES PRE BENDAMUSTINE
     Route: 048
     Dates: start: 20140702, end: 20141119
  53. BENDAMUSTINE [Suspect]
     Active Substance: BENDAMUSTINE
     Dosage: DATE OF LAST DOSE PRIOR FEBRILE NEUTROPENIA AND WORSENING BRONCHIECTASIS: 29/MAY/2014?C1D2
     Route: 042
     Dates: start: 20140529, end: 20140529
  54. BENDAMUSTINE [Suspect]
     Active Substance: BENDAMUSTINE
     Dosage: C2D2
     Route: 042
     Dates: start: 20140703, end: 20140703
  55. BENDAMUSTINE [Suspect]
     Active Substance: BENDAMUSTINE
     Dosage: C3D2
     Route: 042
     Dates: start: 20140730, end: 20140730
  56. BENDAMUSTINE [Suspect]
     Active Substance: BENDAMUSTINE
     Dosage: C5D2
     Route: 042
     Dates: start: 20141015, end: 20141015
  57. CITALOPRAM [Concomitant]
     Active Substance: CITALOPRAM HYDROBROMIDE
     Route: 065
     Dates: start: 20140515
  58. ATROVENT [Concomitant]
     Active Substance: IPRATROPIUM BROMIDE
     Route: 065
     Dates: start: 20140527, end: 20140530
  59. TYLENOL [Concomitant]
     Active Substance: ACETAMINOPHEN
     Route: 048
     Dates: start: 20141129
  60. CIPROFLOXACIN. [Concomitant]
     Active Substance: CIPROFLOXACIN
     Route: 048
     Dates: start: 20140623, end: 20140708
  61. MAXERAN [Concomitant]
     Active Substance: METOCLOPRAMIDE HYDROCHLORIDE
     Route: 048
     Dates: start: 20140603
  62. PLATELETS [Concomitant]
     Active Substance: HUMAN PLATELET, ALLOGENIC
     Dosage: ADULT UNIT SINGLE DOSE
     Route: 065
     Dates: start: 20140616, end: 20140616
  63. OBINUTUZUMAB [Suspect]
     Active Substance: OBINUTUZUMAB
     Dosage: C6D1?LAST DOSE PRIOR TO PNEUMONIA BECOMING SERIOUS: 18/NOV/2014
     Route: 042
     Dates: start: 20141118, end: 20141118
  64. CITALOPRAM [Concomitant]
     Active Substance: CITALOPRAM HYDROBROMIDE
     Indication: MAJOR DEPRESSION
     Route: 048
     Dates: start: 2006
  65. ZANTAC [Concomitant]
     Active Substance: RANITIDINE HYDROCHLORIDE
     Route: 048
     Dates: start: 20141001, end: 20141005
  66. TYLENOL [Concomitant]
     Active Substance: ACETAMINOPHEN
     Dosage: 30 MINUTES BEFORE OBINUTUZUMAB.
     Route: 048
     Dates: start: 20140528, end: 20141118
  67. PLATELETS [Concomitant]
     Active Substance: HUMAN PLATELET, ALLOGENIC
     Route: 042
     Dates: start: 20140530, end: 20140530

REACTIONS (3)
  - Febrile neutropenia [Recovered/Resolved]
  - Pneumonia pseudomonal [Recovered/Resolved with Sequelae]
  - Bronchiectasis [Recovered/Resolved]

NARRATIVE: CASE EVENT DATE: 20140602
